FAERS Safety Report 8936664 (Version 1)
Quarter: 2012Q4

REPORT INFORMATION
  Report Type: 
  Country: US (occurrence: US)
  Receive Date: 20121130
  Receipt Date: 20121130
  Transmission Date: 20130627
  Serious: Yes (Disabling)
  Sender: FDA-Public Use
  Company Number: US-BAYER-2012-123936

PATIENT
  Age: 59 Year
  Sex: Male

DRUGS (1)
  1. REGORAFENIB [Suspect]
     Indication: PRODUCT USED FOR UNKNOWN INDICATION
     Dosage: 160 mg, QD (4 tablets, QD)
     Route: 048
     Dates: start: 20121115

REACTIONS (2)
  - Abasia [Not Recovered/Not Resolved]
  - Blister [Not Recovered/Not Resolved]
